FAERS Safety Report 9884046 (Version 2)
Quarter: 2014Q1

REPORT INFORMATION
  Report Type: Spontaneous
  Country: US (occurrence: US)
  Receive Date: 20140210
  Receipt Date: 20140210
  Transmission Date: 20141002
  Serious: No
  Sender: FDA-Public Use
  Company Number: US-ALLERGAN-1316332US

PATIENT
  Sex: Female
  Weight: 41 kg

DRUGS (2)
  1. BOTOX [Suspect]
     Indication: MUSCLE SPASTICITY
     Dosage: 300 UNITS, SINGLE
     Dates: start: 20130926, end: 20130926
  2. BOTOX [Suspect]
     Dosage: 300 UNITS, SINGLE
     Dates: start: 20040129, end: 20040129

REACTIONS (2)
  - Off label use [Unknown]
  - No therapeutic response [Unknown]
